FAERS Safety Report 20350241 (Version 1)
Quarter: 2022Q1

REPORT INFORMATION
  Report Type: Spontaneous
  Country: GB (occurrence: GB)
  Receive Date: 20220119
  Receipt Date: 20220119
  Transmission Date: 20220424
  Serious: Yes (Other)
  Sender: FDA-Public Use
  Company Number: None

PATIENT
  Age: 51 Year
  Sex: Male
  Weight: 112 kg

DRUGS (6)
  1. DULOXETINE [Suspect]
     Active Substance: DULOXETINE
     Indication: Rotator cuff syndrome
     Dosage: 30 MG PER DAY
     Dates: start: 20211208, end: 20220111
  2. AMITRIPTYLINE [Concomitant]
     Active Substance: AMITRIPTYLINE
     Indication: Arthralgia
     Dosage: TAKEN AT NIGHT
     Dates: start: 20211104, end: 20211217
  3. COMIRNATY [Concomitant]
     Active Substance: TOZINAMERAN
     Indication: Product used for unknown indication
     Dosage: 1 DOSAGE FORM
     Route: 030
     Dates: start: 20211208
  4. DIHYDROCODEINE [Concomitant]
     Active Substance: DIHYDROCODEINE
     Indication: Folliculitis
     Dosage: EVERY 4-6 HOURS, MAXIMUM 5 DAILY
     Dates: start: 20211115
  5. PREGABALIN [Concomitant]
     Active Substance: PREGABALIN
     Indication: Rotator cuff syndrome
     Dosage: 50 MG, 150 MG
     Dates: start: 20220111
  6. TRAMADOL [Concomitant]
     Active Substance: TRAMADOL
     Indication: Arthralgia
     Dosage: ONE OR TWO
     Dates: start: 20211104, end: 20211115

REACTIONS (3)
  - Depression [Recovered/Resolved]
  - Dissociative disorder [Unknown]
  - Feeling abnormal [Unknown]
